FAERS Safety Report 22137599 (Version 1)
Quarter: 2023Q1

REPORT INFORMATION
  Report Type: Spontaneous
  Country: US (occurrence: US)
  Receive Date: 20230325
  Receipt Date: 20230325
  Transmission Date: 20230417
  Serious: Yes (Hospitalization)
  Sender: FDA-Public Use
  Company Number: US-UNITED THERAPEUTICS-UNT-2023-006992

PATIENT
  Age: 48 Year
  Sex: Female
  Weight: 90.703 kg

DRUGS (2)
  1. REMODULIN [Suspect]
     Active Substance: TREPROSTINIL
     Indication: Pulmonary arterial hypertension
     Dosage: 0.072 ?G/KG, CONTINUING
     Route: 058
  2. REMODULIN [Suspect]
     Active Substance: TREPROSTINIL
     Dosage: UNK, CONTINUING
     Route: 058
     Dates: start: 20200207

REACTIONS (4)
  - Blood potassium decreased [Unknown]
  - Urinary tract infection [Unknown]
  - Chest pain [Unknown]
  - Illness [Unknown]

NARRATIVE: CASE EVENT DATE: 20230309
